FAERS Safety Report 8115885-5 (Version None)
Quarter: 2012Q1

REPORT INFORMATION
  Report Type: 
  Country: None (occurrence: None)
  Receive Date: 20120206
  Receipt Date: 20120130
  Transmission Date: 20120608
  Serious: Yes (Hospitalization)
  Sender: FDA-Public Use
  Company Number: BR-BRISTOL-MYERS SQUIBB COMPANY-16374480

PATIENT
  Age: 68 Year
  Sex: Female

DRUGS (5)
  1. LEXOTAN [Concomitant]
     Indication: BLOOD PRESSURE
  2. LEVOTHYROXINE SODIUM [Concomitant]
     Indication: THYROID DISORDER
  3. ONGLYZA [Suspect]
     Indication: DIABETES MELLITUS
     Route: 048
  4. METFORMIN HCL [Concomitant]
     Indication: DIABETES MELLITUS
  5. FENOFIBRATE [Concomitant]
     Indication: BLOOD CHOLESTEROL

REACTIONS (5)
  - HYPERTENSION [None]
  - THYROID DISORDER [None]
  - OSTEOPENIA [None]
  - TREMOR [None]
  - DIABETES MELLITUS INADEQUATE CONTROL [None]
